FAERS Safety Report 6521396-0 (Version None)
Quarter: 2009Q4

REPORT INFORMATION
  Report Type: 
  Country: None (occurrence: None)
  Receive Date: 20091214
  Receipt Date: 20090603
  Transmission Date: 20100525
  Serious: Yes (Other)
  Sender: FDA-Public Use
  Company Number: 636526

PATIENT
  Sex: Male

DRUGS (2)
  1. PEGASYS [Suspect]
     Indication: HEPATITIS C
     Dosage: 180 UG SUBCUTANEOUS
     Route: 058
     Dates: start: 20081201
  2. RIBAVIRIN [Suspect]
     Indication: HEPATITIS C
     Dosage: 1200 MG DAILY
     Dates: start: 20081201

REACTIONS (4)
  - ALANINE AMINOTRANSFERASE INCREASED [None]
  - DEPRESSION [None]
  - HEPATIC NEOPLASM MALIGNANT [None]
  - NEUTROPHIL COUNT DECREASED [None]
